FAERS Safety Report 13952639 (Version 1)
Quarter: 2017Q3

REPORT INFORMATION
  Report Type: Report from Study
  Country: IT (occurrence: IT)
  Receive Date: 20170911
  Receipt Date: 20170911
  Transmission Date: 20171128
  Serious: Yes (Hospitalization, Other)
  Sender: FDA-Public Use
  Company Number: IT-ROCHE-1987439

PATIENT

DRUGS (1)
  1. RIBAVIRIN. [Suspect]
     Active Substance: RIBAVIRIN
     Indication: HEPATITIS C
     Route: 065

REACTIONS (11)
  - Photosensitivity reaction [Unknown]
  - Headache [Unknown]
  - Dizziness [Unknown]
  - Anaemia [Unknown]
  - Gastrointestinal haemorrhage [Unknown]
  - Jaundice [Unknown]
  - Hepatic encephalopathy [Unknown]
  - Fatigue [Unknown]
  - Pruritus [Unknown]
  - Insomnia [Unknown]
  - Rash [Unknown]
